FAERS Safety Report 6179342-8 (Version None)
Quarter: 2009Q2

REPORT INFORMATION
  Report Type: 
  Country: None (occurrence: None)
  Receive Date: 20090505
  Receipt Date: 20090423
  Transmission Date: 20091009
  Serious: Yes (Hospitalization)
  Sender: FDA-Public Use
  Company Number: BR-AVENTIS-200912252EU

PATIENT
  Age: 1 Day
  Sex: Male
  Weight: 2.22 kg

DRUGS (3)
  1. CLEXANE [Suspect]
     Indication: PROPHYLAXIS
     Route: 064
     Dates: start: 20081001, end: 20090201
  2. OSCAL 500+D [Suspect]
     Indication: PROPHYLAXIS
     Route: 064
     Dates: start: 20080601, end: 20090201
  3. NATURETTI [Suspect]
     Indication: CONSTIPATION
     Dosage: DOSE: 1CAPS
     Route: 064
     Dates: start: 20080601

REACTIONS (3)
  - DRUG EXPOSURE DURING PREGNANCY [None]
  - HYPOGLYCAEMIA [None]
  - JAUNDICE [None]
